FAERS Safety Report 9661610 (Version 2)
Quarter: 2013Q4

REPORT INFORMATION
  Report Type: Spontaneous
  Country: US (occurrence: US)
  Receive Date: 20131031
  Receipt Date: 20131031
  Transmission Date: 20140711
  Serious: No
  Sender: FDA-Public Use
  Company Number: US-PURDUE-USA-2010-0055296

PATIENT
  Age: 62 Year
  Sex: Male
  Weight: 77.1 kg

DRUGS (2)
  1. OXYCONTIN (NDA 22-272) [Suspect]
     Indication: PAIN
     Dosage: 80 MG, TID
     Route: 048
     Dates: start: 201009
  2. PERCOCET                           /00446701/ [Concomitant]
     Indication: BREAKTHROUGH PAIN
     Dosage: UNK

REACTIONS (6)
  - Pain [Unknown]
  - Gait disturbance [Not Recovered/Not Resolved]
  - Pain in extremity [Not Recovered/Not Resolved]
  - Inadequate analgesia [Not Recovered/Not Resolved]
  - Constipation [Unknown]
  - Insomnia [Not Recovered/Not Resolved]
